FAERS Safety Report 6693207-4 (Version None)
Quarter: 2010Q2

REPORT INFORMATION
  Report Type: 
  Country: None (occurrence: None)
  Receive Date: 20100421
  Receipt Date: 20100421
  Transmission Date: 20101027
  Serious: No
  Sender: FDA-Public Use
  Company Number: None

PATIENT
  Age: 40 Year
  Sex: Female
  Weight: 51.7101 kg

DRUGS (1)
  1. CIPROFLOXACIN HCL [Suspect]
     Indication: URINARY TRACT INFECTION
     Dosage: 500MG EVERY 12 HOURS PO
     Route: 048
     Dates: start: 20100403, end: 20100405

REACTIONS (5)
  - EAR PAIN [None]
  - HYPERSENSITIVITY [None]
  - MYALGIA [None]
  - OROPHARYNGEAL PAIN [None]
  - TENDON PAIN [None]
